FAERS Safety Report 8129147-3 (Version None)
Quarter: 2012Q1

REPORT INFORMATION
  Report Type: 
  Country: None (occurrence: None)
  Receive Date: 20120210
  Receipt Date: 20111017
  Transmission Date: 20120608
  Serious: No
  Sender: FDA-Public Use
  Company Number: US-BRISTOL-MYERS SQUIBB COMPANY-16168064

PATIENT
  Age: 65 Year
  Sex: Female
  Weight: 106 kg

DRUGS (1)
  1. ORENCIA [Suspect]
     Indication: RHEUMATOID ARTHRITIS
     Dosage: LAST DOSE: 11OCT11.
     Route: 042

REACTIONS (1)
  - HYPERGLYCAEMIA [None]
